FAERS Safety Report 8920192 (Version 2)
Quarter: 2013Q1

REPORT INFORMATION
  Report Type: Spontaneous
  Country: DE (occurrence: DE)
  Receive Date: 20121121
  Receipt Date: 20130103
  Transmission Date: 20140127
  Serious: No
  Sender: FDA-Public Use
  Company Number: DE-BAYER-2012-120226

PATIENT
  Age: 33 Year
  Sex: Female

DRUGS (2)
  1. BETAFERON [Suspect]
     Dosage: UNK
     Dates: end: 20120705
  2. IBUPROFEN [Concomitant]
     Dosage: UNK

REACTIONS (5)
  - Injection site pain [Recovered/Resolved]
  - Oedema [Recovered/Resolved]
  - Acne [Recovered/Resolved]
  - Dyspnoea [Recovered/Resolved]
  - Fatigue [Recovered/Resolved]
